FAERS Safety Report 9873784 (Version 2)
Quarter: 2014Q1

REPORT INFORMATION
  Report Type: Spontaneous
  Country: US (occurrence: US)
  Receive Date: 20140206
  Receipt Date: 20140206
  Transmission Date: 20141002
  Serious: No
  Sender: FDA-Public Use
  Company Number: US-ACORDA-ACO_33816_2013

PATIENT
  Age: 69 Year
  Sex: Male
  Weight: 68.93 kg

DRUGS (11)
  1. AMPYRA [Suspect]
     Indication: PRODUCT USED FOR UNKNOWN INDICATION
     Dosage: 10 MG, BID
     Route: 048
     Dates: start: 20130102, end: 201301
  2. NEFAZODONE HCL [Concomitant]
     Indication: PRODUCT USED FOR UNKNOWN INDICATION
     Dosage: 50 MG 3 TID AND 100 MG (FREQUENCY NOT PROVIDED)
     Route: 048
  3. AVONEX [Concomitant]
     Indication: PRODUCT USED FOR UNKNOWN INDICATION
     Dosage: 30 ?G, 1 INJECTION/WEEKLY
  4. CYANOCOBALAMIN [Concomitant]
     Indication: PRODUCT USED FOR UNKNOWN INDICATION
     Dosage: 1000 MCG/ML (INJECTED 0.1 ML)/MONTH
     Route: 030
  5. ASPIRIN [Concomitant]
     Indication: PRODUCT USED FOR UNKNOWN INDICATION
     Dosage: 81 MG, 2 TABLETS DAILY
     Route: 048
  6. TAMSULOSIN HYDROCHLORIDE [Concomitant]
     Indication: PRODUCT USED FOR UNKNOWN INDICATION
     Dosage: 0.4 MG, DAILY, 1/2 HOUR FOLLOWING SAME MEAL
     Route: 048
  7. CENTRUM SILVER [Concomitant]
     Indication: PRODUCT USED FOR UNKNOWN INDICATION
     Dosage: 1 DAILY
     Route: 048
  8. CITRACAL + D [Concomitant]
     Indication: PRODUCT USED FOR UNKNOWN INDICATION
     Dosage: 315 MG-250 UNIT
  9. DEXILANT [Concomitant]
     Indication: PRODUCT USED FOR UNKNOWN INDICATION
     Dosage: 1 CAPSULE/DAILY
     Route: 048
  10. FLOVENT [Concomitant]
     Indication: PRODUCT USED FOR UNKNOWN INDICATION
     Dosage: 50 ?G, UNK
     Route: 055
  11. FLOMAX [Concomitant]
     Indication: PRODUCT USED FOR UNKNOWN INDICATION
     Dosage: 0.4 MG
     Route: 048

REACTIONS (4)
  - Gait disturbance [Unknown]
  - Anxiety [Unknown]
  - Balance disorder [Unknown]
  - Paraesthesia [Unknown]
